FAERS Safety Report 9785576 (Version 1)
Quarter: 2013Q4

REPORT INFORMATION
  Report Type: Spontaneous
  Country: GB (occurrence: None)
  Receive Date: 20131223
  Receipt Date: 20131223
  Transmission Date: 20140711
  Serious: Yes (Other)
  Sender: FDA-Public Use
  Company Number: EUS-2013-00623

PATIENT
  Sex: 0

DRUGS (8)
  1. ASPARAGINASE (UNSPECIFIED) (ASPARAGINASE) [Suspect]
     Indication: ACUTE LYMPHOCYTIC LEUKAEMIA
     Dosage: 12000 (12000, 12000 IU/M2 DAY
     Route: 030
  2. DEXAMETHASONE (DEXAMETHASONE) (DEXAMETHASONE) [Concomitant]
  3. DOXORUBICIN (DOXORUBICIN) (DOXORUBICIN) [Concomitant]
  4. VINCRISTINE (VINCRISTINE) (VINCRISTINE) [Concomitant]
  5. METHOTREXATE (METHOTREXATE) (METHOTREXATE) [Concomitant]
  6. CYTARABINE (CYTARABINE) (CYTARABINE) [Concomitant]
  7. CYT/MTX/HC(HYDROCORTISONE) (HYDROCORTISONE) [Concomitant]
  8. MERCAPTOPURINE (MERCAPTOPURINE) [Concomitant]

REACTIONS (1)
  - Hepatotoxicity [None]
